FAERS Safety Report 5454908-9 (Version None)
Quarter: 2007Q3

REPORT INFORMATION
  Report Type: 
  Country: None (occurrence: None)
  Receive Date: 20070917
  Receipt Date: 20061023
  Transmission Date: 20080115
  Serious: No
  Sender: FDA-Public Use
  Company Number: US-ASTRAZENECA-2006UW20472

PATIENT
  Age: 33 Year
  Sex: Female
  Weight: 83.9 kg

DRUGS (5)
  1. SEROQUEL [Suspect]
     Indication: BIPOLAR DISORDER
     Route: 048
     Dates: start: 20040101
  2. SEROQUEL [Suspect]
     Indication: POST-TRAUMATIC STRESS DISORDER
     Route: 048
     Dates: start: 20040101
  3. PROZAC [Concomitant]
  4. EFFEXOR [Concomitant]
  5. XANAX [Concomitant]

REACTIONS (5)
  - ANOREXIA [None]
  - DIZZINESS POSTURAL [None]
  - DRY MOUTH [None]
  - HOT FLUSH [None]
  - INCREASED APPETITE [None]
